FAERS Safety Report 6248268-3 (Version None)
Quarter: 2009Q2

REPORT INFORMATION
  Report Type: 
  Country: None (occurrence: None)
  Receive Date: 20090629
  Receipt Date: 20090616
  Transmission Date: 20091009
  Serious: Yes (Hospitalization)
  Sender: FDA-Public Use
  Company Number: PHHY2009KR23575

PATIENT
  Sex: Male

DRUGS (6)
  1. CLOZARIL [Suspect]
     Dosage: 300 MG DAILY
     Route: 048
     Dates: start: 20080202, end: 20090404
  2. CLOZARIL [Suspect]
     Dosage: UNK
     Route: 048
     Dates: start: 20090407
  3. ENAFON [Concomitant]
  4. TOPAMAX [Concomitant]
  5. DILANTIN [Concomitant]
  6. POLYCARBOPHIL CALCIUM [Concomitant]

REACTIONS (1)
  - APPENDICECTOMY [None]
